FAERS Safety Report 17338089 (Version 1)
Quarter: 2020Q1

REPORT INFORMATION
  Report Type: Spontaneous
  Country: JP (occurrence: JP)
  Receive Date: 20200129
  Receipt Date: 20200129
  Transmission Date: 20200409
  Serious: Yes (Death, Life-Threatening, Hospitalization, Other)
  Sender: FDA-Public Use
  Company Number: JP-AXELLIA-002950

PATIENT
  Age: 84 Year
  Sex: Female

DRUGS (10)
  1. VANCOMYCIN [Suspect]
     Active Substance: VANCOMYCIN
     Indication: ANTIBIOTIC THERAPY
     Dosage: 500 MG TO 1 G AT A TIME
  2. CEFMETAZOLE [Suspect]
     Active Substance: CEFMETAZOLE
     Indication: ANTIBIOTIC THERAPY
  3. SULFAMETHOXAZOLE/TRIMETHOPRIM [Suspect]
     Active Substance: SULFAMETHOXAZOLE\TRIMETHOPRIM
     Indication: PNEUMOCYSTIS JIROVECII PNEUMONIA
  4. VANCOMYCIN [Suspect]
     Active Substance: VANCOMYCIN
     Indication: ANTIBIOTIC THERAPY
     Dosage: AT A TIME
  5. PREDNISOLONE. [Concomitant]
     Active Substance: PREDNISOLONE
  6. VANCOMYCIN [Suspect]
     Active Substance: VANCOMYCIN
     Indication: ANTIBIOTIC THERAPY
     Dosage: AT A TIME
  7. PREDNISOLONE. [Concomitant]
     Active Substance: PREDNISOLONE
  8. ACICLOVIR [Suspect]
     Active Substance: ACYCLOVIR
     Indication: VARICELLA ZOSTER VIRUS INFECTION
     Route: 042
  9. PREDNISOLONE. [Concomitant]
     Active Substance: PREDNISOLONE
  10. PREDNISOLONE. [Concomitant]
     Active Substance: PREDNISOLONE

REACTIONS (1)
  - Drug ineffective [Fatal]
